FAERS Safety Report 8233989-3 (Version None)
Quarter: 2012Q1

REPORT INFORMATION
  Report Type: 
  Country: None (occurrence: None)
  Receive Date: 20120326
  Receipt Date: 20120315
  Transmission Date: 20120608
  Serious: Yes (Hospitalization)
  Sender: FDA-Public Use
  Company Number: US-ABBOTT-12P-163-0915974-00

PATIENT
  Sex: Male
  Weight: 87.622 kg

DRUGS (4)
  1. HUMIRA [Suspect]
     Indication: PSORIASIS
     Dosage: PSORIASIS STARTER AND 1 INJECTION
     Route: 058
     Dates: start: 20110201, end: 20110201
  2. HUMIRA [Suspect]
  3. CARVEDILOL [Concomitant]
     Indication: HYPERTENSION
  4. CLONIDINE [Concomitant]
     Indication: PRODUCT USED FOR UNKNOWN INDICATION

REACTIONS (4)
  - LIVER TRANSPLANT [None]
  - AMMONIA INCREASED [None]
  - PNEUMONIA [None]
  - DISORIENTATION [None]
